FAERS Safety Report 7372416-5 (Version None)
Quarter: 2011Q1

REPORT INFORMATION
  Report Type: 
  Country: None (occurrence: None)
  Receive Date: 20110324
  Receipt Date: 20091218
  Transmission Date: 20110831
  Serious: Yes (Other)
  Sender: FDA-Public Use
  Company Number: PHHY2009DE67816

PATIENT
  Sex: Female

DRUGS (2)
  1. EXTAVIA [Suspect]
     Dosage: 0.25 ML, UNK
     Route: 058
  2. EXTAVIA [Suspect]
     Indication: MULTIPLE SCLEROSIS
     Dosage: 250 UG / DAY
     Route: 058
     Dates: start: 20091211, end: 20100413

REACTIONS (8)
  - GRANULOCYTOPENIA [None]
  - INFLUENZA LIKE ILLNESS [None]
  - ARTHRALGIA [None]
  - PAIN IN EXTREMITY [None]
  - VIRAL INFECTION [None]
  - MULTIPLE SCLEROSIS RELAPSE [None]
  - EYE DISORDER [None]
  - LEUKOPENIA [None]
